FAERS Safety Report 5373726-3 (Version None)
Quarter: 2007Q2

REPORT INFORMATION
  Report Type: 
  Country: None (occurrence: None)
  Receive Date: 20070628
  Receipt Date: 20070430
  Transmission Date: 20071010
  Serious: Yes (Other)
  Sender: FDA-Public Use
  Company Number: US-PURDUE-USA_2007_0027661

PATIENT
  Age: 49 Year
  Sex: Female

DRUGS (1)
  1. OXYCONTIN [Suspect]
     Indication: CANCER PAIN
     Dosage: 20 MG, SEE TEXT
     Dates: start: 20000524, end: 20020905

REACTIONS (4)
  - DIZZINESS [None]
  - FALL [None]
  - INCOHERENT [None]
  - LOWER LIMB FRACTURE [None]
